FAERS Safety Report 4492118-2 (Version None)
Quarter: 2004Q3

REPORT INFORMATION
  Report Type: 
  Country: None (occurrence: None)
  Receive Date: 20040924
  Receipt Date: 20030918
  Transmission Date: 20050211
  Serious: Yes (Hospitalization)
  Sender: FDA-Public Use
  Company Number: 03P-163-0234433-00

PATIENT
  Age: 45 Year
  Sex: Male

DRUGS (4)
  1. KALETRA [Suspect]
     Indication: HIV INFECTION
     Dosage: PER ORAL
     Route: 048
     Dates: start: 20030101
  2. VIREAD [Concomitant]
  3. STAVUDINE [Concomitant]
  4. LAMIVUDINE [Concomitant]

REACTIONS (1)
  - RHABDOMYOLYSIS [None]
